FAERS Safety Report 5137485-1 (Version None)
Quarter: 2006Q4

REPORT INFORMATION
  Report Type: 
  Country: None (occurrence: None)
  Receive Date: 20061030
  Receipt Date: 20051109
  Transmission Date: 20070319
  Serious: No
  Sender: FDA-Public Use
  Company Number: US-GLAXOSMITHKLINE-A0581622A

PATIENT
  Age: 35 Year
  Sex: Female

DRUGS (16)
  1. ADVAIR HFA [Suspect]
     Indication: DRUG USE FOR UNKNOWN INDICATION
     Dosage: 1PUFF TWICE PER DAY
     Route: 055
     Dates: start: 20041101
  2. ULTRAM [Concomitant]
  3. LASIX [Concomitant]
  4. MULTI-VITAMIN [Concomitant]
  5. CELEBREX [Concomitant]
  6. COMPAZINE [Concomitant]
  7. ACIPHEX [Concomitant]
  8. MAXAIR [Concomitant]
  9. PROZAC [Concomitant]
  10. SEROQUEL [Concomitant]
  11. SKELAXIN [Concomitant]
  12. NEURONTIN [Concomitant]
  13. AMBIEN [Concomitant]
  14. DILTIAZEM HCL [Concomitant]
  15. ACETAZOLAMIDE [Concomitant]
  16. KLONOPIN [Concomitant]

REACTIONS (2)
  - DRUG INEFFECTIVE [None]
  - PHARMACEUTICAL PRODUCT COMPLAINT [None]
